FAERS Safety Report 9688811 (Version 1)
Quarter: 2013Q4

REPORT INFORMATION
  Report Type: Spontaneous
  Country: US (occurrence: US)
  Receive Date: 20131114
  Receipt Date: 20131114
  Transmission Date: 20140711
  Serious: Yes (Other)
  Sender: FDA-Public Use
  Company Number: US-BAYER-2013-139108

PATIENT
  Age: 31 Year
  Sex: Female

DRUGS (4)
  1. YASMIN [Suspect]
  2. METAMUCIL [Concomitant]
     Dosage: UNK UNK, QD
     Route: 048
  3. ZOFRAN [Concomitant]
  4. DILAUDID [Concomitant]

REACTIONS (1)
  - Pulmonary embolism [None]
